FAERS Safety Report 17297661 (Version 1)
Quarter: 2020Q1

REPORT INFORMATION
  Report Type: Spontaneous
  Country: US (occurrence: US)
  Receive Date: 20200122
  Receipt Date: 20200122
  Transmission Date: 20200409
  Serious: No
  Sender: FDA-Public Use
  Company Number: US-009507513-2001USA006990

PATIENT
  Sex: Female

DRUGS (7)
  1. PROVENTIL [Suspect]
     Active Substance: ALBUTEROL
     Dosage: INHALER 2
  2. PROVENTIL [Suspect]
     Active Substance: ALBUTEROL
     Dosage: 2 PUFFFS EVERY 2 HOURS, AS NEEDED
  3. PROVENTIL [Suspect]
     Active Substance: ALBUTEROL
     Dosage: INHALER 1
  4. PROVENTIL [Suspect]
     Active Substance: ALBUTEROL
     Dosage: INHALER 4
  5. PROVENTIL [Suspect]
     Active Substance: ALBUTEROL
     Indication: WHEEZING
     Dosage: UNK
     Dates: start: 201908
  6. PROVENTIL [Suspect]
     Active Substance: ALBUTEROL
     Dosage: INHALER 5
  7. PROVENTIL [Suspect]
     Active Substance: ALBUTEROL
     Dosage: INHALER 3

REACTIONS (5)
  - Product dose omission [Unknown]
  - Product quality issue [Unknown]
  - Product quality issue [Unknown]
  - Poor quality device used [Unknown]
  - Poor quality device used [Unknown]

NARRATIVE: CASE EVENT DATE: 20200113
